FAERS Safety Report 8372216-3 (Version None)
Quarter: 2012Q2

REPORT INFORMATION
  Report Type: 
  Country: None (occurrence: None)
  Receive Date: 20120521
  Receipt Date: 20120510
  Transmission Date: 20120825
  Serious: Yes (Hospitalization)
  Sender: FDA-Public Use
  Company Number: US-BIOGENIDEC-2012BI004984

PATIENT
  Sex: Female

DRUGS (2)
  1. TYSABRI [Suspect]
     Indication: MULTIPLE SCLEROSIS
     Route: 042
     Dates: start: 20101015, end: 20101015
  2. TYSABRI [Suspect]
     Route: 042
     Dates: start: 20110803

REACTIONS (10)
  - PYREXIA [None]
  - DIPLOPIA [None]
  - DECUBITUS ULCER [None]
  - MULTIPLE SCLEROSIS RELAPSE [None]
  - WRIST FRACTURE [None]
  - MOBILITY DECREASED [None]
  - FALL [None]
  - DYSSTASIA [None]
  - PAIN [None]
  - HYPERSOMNIA [None]
